FAERS Safety Report 23636496 (Version 2)
Quarter: 2024Q1

REPORT INFORMATION
  Report Type: Spontaneous
  Country: PL (occurrence: PL)
  Receive Date: 20240315
  Receipt Date: 20240319
  Transmission Date: 20240410
  Serious: Yes (Life-Threatening, Other)
  Sender: FDA-Public Use
  Company Number: PL-MLMSERVICE-20240305-4867651-1

PATIENT
  Age: 41 Year
  Sex: Female

DRUGS (3)
  1. FLUCONAZOLE [Suspect]
     Active Substance: FLUCONAZOLE
     Indication: Candida endophthalmitis
     Dosage: 400 MG, 1X/DAY
     Route: 042
  2. MORPHINE [Concomitant]
     Active Substance: MORPHINE
     Indication: Porphyria acute
     Dosage: UNK
     Route: 042
  3. HEMIN [Concomitant]
     Active Substance: HEMIN
     Indication: Porphyria acute
     Dosage: UNK
     Route: 042

REACTIONS (2)
  - Porphyria [Recovering/Resolving]
  - Drug ineffective [Unknown]
